FAERS Safety Report 12111220 (Version 2)
Quarter: 2016Q1

REPORT INFORMATION
  Report Type: Spontaneous
  Country: US (occurrence: US)
  Receive Date: 20160224
  Receipt Date: 20160311
  Transmission Date: 20160526
  Serious: Yes (Hospitalization, Other)
  Sender: FDA-Public Use
  Company Number: US-BECTON DICKINSON-2016BDN00035

PATIENT
  Age: 46 Year
  Sex: Female
  Weight: 61 kg

DRUGS (15)
  1. VITAMIN D3 [Concomitant]
     Active Substance: CHOLECALCIFEROL
  2. REMODULIN [Suspect]
     Active Substance: TREPROSTINIL
     Dosage: 0.1595 MCG/KG
     Route: 042
  3. REMODULIN [Suspect]
     Active Substance: TREPROSTINIL
     Dosage: 0.1655 MCG/KG
     Route: 042
  4. COUMADIN [Suspect]
     Active Substance: WARFARIN SODIUM
  5. ADCIRCA [Suspect]
     Active Substance: TADALAFIL
  6. GABAPENTIN. [Concomitant]
     Active Substance: GABAPENTIN
  7. AMBRISENTAN [Suspect]
     Active Substance: AMBRISENTAN
     Dosage: 10 MG, 1X/DAY
     Dates: start: 20151027
  8. AMBRISENTAN [Suspect]
     Active Substance: AMBRISENTAN
     Indication: PULMONARY ARTERIAL HYPERTENSION
     Dosage: 10 MG, 1X/DAY
     Dates: start: 20151027
  9. CEFAZOLIN [Concomitant]
     Active Substance: CEFAZOLIN
  10. POTASSIUM [Concomitant]
     Active Substance: POTASSIUM
  11. CHLORAPREP [Suspect]
     Active Substance: CHLORHEXIDINE GLUCONATE\ISOPROPYL ALCOHOL
     Indication: INFECTION PROPHYLAXIS
     Dosage: UNK
     Route: 061
     Dates: start: 201511
  12. REMODULIN [Suspect]
     Active Substance: TREPROSTINIL
     Indication: PULMONARY ARTERIAL HYPERTENSION
     Dosage: 0.00760 MCG/KG
     Route: 058
     Dates: start: 20151117
  13. VITAMIN B12 [Concomitant]
     Active Substance: CYANOCOBALAMIN
  14. TORSEMIDE. [Concomitant]
     Active Substance: TORSEMIDE
  15. PRENATAL VITAMINS [Concomitant]
     Active Substance: VITAMINS

REACTIONS (7)
  - Thrombosis in device [Unknown]
  - Pain [Unknown]
  - Device related infection [Unknown]
  - Skin infection [Unknown]
  - Device dislocation [Recovered/Resolved]
  - Hypersensitivity [Unknown]
  - Nausea [Unknown]

NARRATIVE: CASE EVENT DATE: 201511
